FAERS Safety Report 7793839-6 (Version None)
Quarter: 2011Q4

REPORT INFORMATION
  Report Type: 
  Country: None (occurrence: None)
  Receive Date: 20111004
  Receipt Date: 20110928
  Transmission Date: 20120403
  Serious: Yes (Hospitalization, Other)
  Sender: FDA-Public Use
  Company Number: US-ASTRAZENECA-2009UW19578

PATIENT
  Age: 36 Year
  Sex: Male

DRUGS (16)
  1. SEROQUEL [Suspect]
     Dosage: 500 MG IN EVENING AND 200 IN THE MORNING
     Route: 048
  2. LEXAPRO [Concomitant]
     Dates: start: 20060223
  3. PROPRANOLOL [Concomitant]
     Dates: start: 20070530
  4. APAP W/ CODEINE [Concomitant]
     Dosage: 300-30 MG
     Dates: start: 20051121
  5. LORAZEPAM [Concomitant]
     Dates: start: 20070321
  6. CARBAMAZEPINE [Concomitant]
     Dates: start: 20090301
  7. SEROQUEL [Suspect]
     Indication: BIPOLAR DISORDER
     Dosage: 50 MG TO 400 MG
     Route: 048
     Dates: start: 20070321
  8. PRILOSEC [Concomitant]
     Dates: start: 20060714
  9. TEMAZEPAM [Concomitant]
     Dates: start: 20070321
  10. LAMICTAL [Concomitant]
     Dosage: 25 MG-100 MG
     Dates: start: 20070530
  11. PHENYTOIN EX [Concomitant]
     Dosage: 100 MG-400 MG
     Dates: start: 20060313
  12. ATENOLOL [Concomitant]
     Dates: start: 20061218
  13. PROMETHAZINE [Concomitant]
     Dates: start: 20060828
  14. EFFEXOR XR [Concomitant]
     Dates: start: 20070118
  15. ACETAMINOPHEN AND HYDROCODONE BITARTRATE [Concomitant]
     Dates: start: 20060828
  16. CLONAZEPAM [Concomitant]
     Dates: start: 20090301

REACTIONS (6)
  - HAND FRACTURE [None]
  - OVERDOSE [None]
  - DIABETES MELLITUS [None]
  - FALL [None]
  - SUICIDE ATTEMPT [None]
  - MULTIPLE DRUG OVERDOSE INTENTIONAL [None]
